FAERS Safety Report 6421070 (Version 2)
Quarter: 2022Q1

REPORT INFORMATION
  Report Type: Report from Study
  Country: US (occurrence: US)
  Receive Date: 20070919
  Receipt Date: 20220118
  Transmission Date: 20220424
  Serious: Yes (Hospitalization)
  Sender: FDA-Public Use
  Company Number: US-PFIZER INC-2007075559

PATIENT
  Age: 69 Year
  Sex: Female
  Weight: 78.3 kg

DRUGS (1)
  1. SUTENT [Suspect]
     Active Substance: SUNITINIB MALATE
     Indication: Thyroid cancer
     Dosage: CYCLE = 6 WEEKS: 50MG QD X 4 WEEKS
     Route: 048
     Dates: start: 20070710, end: 20070807

REACTIONS (1)
  - Pneumonitis [Not Recovered/Not Resolved]

NARRATIVE: CASE EVENT DATE: 20070810
